FAERS Safety Report 10580689 (Version 1)
Quarter: 2014Q4

REPORT INFORMATION
  Report Type: Spontaneous
  Country: CA (occurrence: CA)
  Receive Date: 20141113
  Receipt Date: 20141113
  Transmission Date: 20150529
  Serious: Yes (Other)
  Sender: FDA-Public Use
  Company Number: CA-ROCHE-1489379

PATIENT
  Age: 59 Year
  Sex: Male
  Weight: 70 kg

DRUGS (5)
  1. RIBAVIRIN. [Suspect]
     Active Substance: RIBAVIRIN
     Indication: PRODUCT USED FOR UNKNOWN INDICATION
     Route: 048
  2. INCIVEK [Suspect]
     Active Substance: TELAPREVIR
     Indication: PRODUCT USED FOR UNKNOWN INDICATION
     Dosage: THERAPY DURATION: 10 DAYS
     Route: 048
  3. PEGASYS [Suspect]
     Active Substance: PEGINTERFERON ALFA-2A
     Indication: PRODUCT USED FOR UNKNOWN INDICATION
     Dosage: DOSE: 135 MICROCURIES; THERAPY DURATION: 276 ?
     Route: 058
  4. PEGASYS [Suspect]
     Active Substance: PEGINTERFERON ALFA-2A
     Route: 058
  5. RIBAVIRIN. [Suspect]
     Active Substance: RIBAVIRIN
     Route: 048

REACTIONS (17)
  - Ecchymosis [Unknown]
  - Headache [Unknown]
  - Rash maculo-papular [Unknown]
  - Abdominal pain upper [Unknown]
  - Asthenia [Unknown]
  - Haemoglobin decreased [Unknown]
  - Neck pain [Unknown]
  - Myalgia [Unknown]
  - Chest discomfort [Unknown]
  - Dyspnoea [Unknown]
  - Frequent bowel movements [Unknown]
  - Aphthous stomatitis [Unknown]
  - Nausea [Unknown]
  - Pruritus [Unknown]
  - Fatigue [Unknown]
  - Eructation [Unknown]
  - Neutrophil count decreased [Unknown]
